FAERS Safety Report 6359560-6 (Version None)
Quarter: 2009Q3

REPORT INFORMATION
  Report Type: 
  Country: None (occurrence: None)
  Receive Date: 20090917
  Receipt Date: 20090911
  Transmission Date: 20100115
  Serious: Yes (Hospitalization, Other)
  Sender: FDA-Public Use
  Company Number: US-ELI_LILLY_AND_COMPANY-US200909002753

PATIENT
  Age: 73 Year
  Sex: Female

DRUGS (2)
  1. HUMULIN N [Suspect]
  2. HUMULIN R [Suspect]
     Dosage: UNK, UNK
     Dates: start: 19920101, end: 19920101

REACTIONS (5)
  - BLOOD GLUCOSE DECREASED [None]
  - BLOOD GLUCOSE INCREASED [None]
  - INCORRECT DOSE ADMINISTERED [None]
  - MYOCARDIAL INFARCTION [None]
  - SHOCK HYPOGLYCAEMIC [None]
